FAERS Safety Report 11977241 (Version 1)
Quarter: 2016Q1

REPORT INFORMATION
  Report Type: Spontaneous
  Country: US (occurrence: None)
  Receive Date: 20160128
  Receipt Date: 20160128
  Transmission Date: 20160526
  Serious: Yes (Other)
  Sender: FDA-Public Use
  Company Number: None

PATIENT
  Age: 59 Year
  Sex: Female
  Weight: 154 kg

DRUGS (7)
  1. VITAMIN C [Concomitant]
     Active Substance: ASCORBIC ACID
  2. CLARITHROMYCIN 500MG 68382-0762-14 [Suspect]
     Active Substance: CLARITHROMYCIN
     Indication: BACTERIAL INFECTION
     Route: 048
     Dates: start: 20150119, end: 20150127
  3. AMOXICILLIN 500MG 68382-0762-14 [Suspect]
     Active Substance: AMOXICILLIN
     Indication: BACTERIAL INFECTION
     Dosage: 2PILLS 2TIMES ADAY TWICE DAILY TAKEN BY MOUTH
     Route: 048
     Dates: start: 20150119, end: 20150127
  4. CENTURY VITAMINS [Concomitant]
  5. AMPINE [Concomitant]
  6. OMEPRAZOLE. [Concomitant]
     Active Substance: OMEPRAZOLE
  7. VITAMINS D [Concomitant]

REACTIONS (3)
  - Abdominal discomfort [None]
  - Dysgeusia [None]
  - Abdominal pain upper [None]

NARRATIVE: CASE EVENT DATE: 20150122
